FAERS Safety Report 6975897-1 (Version None)
Quarter: 2010Q3

REPORT INFORMATION
  Report Type: 
  Country: None (occurrence: None)
  Receive Date: 20100910
  Receipt Date: 20100903
  Transmission Date: 20110219
  Serious: Yes (Other)
  Sender: FDA-Public Use
  Company Number: CL-PFIZER INC-2010111869

PATIENT
  Sex: Female

DRUGS (1)
  1. MEDROL [Suspect]
     Indication: ASTHMA
     Dosage: 16 MG, 1X/DAY
     Route: 048
     Dates: start: 20100902

REACTIONS (1)
  - EYE PAIN [None]
